FAERS Safety Report 24939706 (Version 1)
Quarter: 2025Q1

REPORT INFORMATION
  Report Type: Spontaneous
  Country: US (occurrence: US)
  Receive Date: 20250207
  Receipt Date: 20250207
  Transmission Date: 20250408
  Serious: Yes (Other)
  Sender: ABBVIE
  Company Number: US-ABBVIE-6121516

PATIENT
  Age: 37 Year

DRUGS (1)
  1. LILETTA [Suspect]
     Active Substance: LEVONORGESTREL
     Indication: Product used for unknown indication
     Route: 015
     Dates: start: 20250129, end: 20250129

REACTIONS (2)
  - Uterine perforation [Unknown]
  - Embedded device [Unknown]

NARRATIVE: CASE EVENT DATE: 20250129
